FAERS Safety Report 5769114-8 (Version None)
Quarter: 2008Q2

REPORT INFORMATION
  Report Type: 
  Country: None (occurrence: None)
  Receive Date: 20080612
  Receipt Date: 20080519
  Transmission Date: 20081010
  Serious: No
  Sender: FDA-Public Use
  Company Number: US-ABBOTT-08P-163-0443618-00

PATIENT
  Sex: Female
  Weight: 56.75 kg

DRUGS (5)
  1. HUMIRA [Suspect]
     Indication: RHEUMATOID ARTHRITIS
     Route: 058
     Dates: start: 20080401
  2. HUMIRA [Suspect]
     Route: 058
     Dates: start: 20080211
  3. HUMIRA [Suspect]
     Dates: start: 20071101
  4. PREDNISONE TAB [Suspect]
     Indication: RHEUMATOID ARTHRITIS
     Route: 048
     Dates: start: 20050101
  5. SULFASALAZINE [Suspect]
     Indication: RHEUMATOID ARTHRITIS
     Route: 048
     Dates: start: 20071201

REACTIONS (5)
  - ERYTHEMA [None]
  - EYELID OEDEMA [None]
  - PRURITUS [None]
  - RASH MACULAR [None]
  - SWELLING FACE [None]
